FAERS Safety Report 8045692-3 (Version None)
Quarter: 2012Q1

REPORT INFORMATION
  Report Type: 
  Country: None (occurrence: None)
  Receive Date: 20120110
  Receipt Date: 20120103
  Transmission Date: 20120608
  Serious: Yes (Other)
  Sender: FDA-Public Use
  Company Number: AUR-APL-2012-00180

PATIENT
  Age: 76 Year
  Sex: Female

DRUGS (12)
  1. TRIAMTERENE/HCTZ (DYAZIDE) [Concomitant]
  2. ACETAMINOPHEN (PAACETAMOL) [Concomitant]
  3. ZOLPIDEM [Suspect]
     Indication: INSOMNIA
     Dosage: (2 DOSAGE FORMS), ORAL, ORAL, (1 DOSAGE FORMS, 1D), ORAL
     Route: 048
     Dates: start: 20120102
  4. ZOLPIDEM [Suspect]
     Indication: INSOMNIA
     Dosage: (2 DOSAGE FORMS), ORAL, ORAL, (1 DOSAGE FORMS, 1D), ORAL
     Route: 048
     Dates: start: 20120101
  5. ALLEGRO (FLUTICASONE PROPIONATE) [Concomitant]
  6. LOSARTAN POTASSIUM [Concomitant]
  7. LEVOTHYROXINE SODIUM [Concomitant]
  8. METOPROLOL TARTRATE [Concomitant]
  9. SINGULAIR [Concomitant]
  10. INSULIN [Concomitant]
  11. AMITRIPTYLINE HCL [Concomitant]
  12. PRILOSEC [Concomitant]

REACTIONS (2)
  - INSOMNIA [None]
  - PRODUCT SUBSTITUTION ISSUE [None]
